FAERS Safety Report 8881254 (Version 1)
Quarter: 2012Q4

REPORT INFORMATION
  Report Type: 
  Country: US (occurrence: US)
  Receive Date: 20121031
  Receipt Date: 20121031
  Transmission Date: 20130627
  Serious: No
  Sender: FDA-Public Use
  Company Number: US-TEVA-366980USA

PATIENT
  Age: 2 Year
  Sex: Male

DRUGS (2)
  1. QVAR [Suspect]
     Indication: ASTHMA
     Dosage: 80 Microgram Daily; 2 puffs
     Route: 055
     Dates: start: 20121012
  2. MONTELUKAST [Concomitant]
     Indication: ASTHMA
     Dosage: 4 Milligram Daily;
     Route: 048

REACTIONS (1)
  - Nightmare [Not Recovered/Not Resolved]
